FAERS Safety Report 13054865 (Version 4)
Quarter: 2018Q3

REPORT INFORMATION
  Report Type: Spontaneous
  Country: US (occurrence: US)
  Receive Date: 20161222
  Receipt Date: 20180831
  Transmission Date: 20181010
  Serious: Yes (Life-Threatening, Other)
  Sender: FDA-Public Use
  Company Number: US-PFIZER INC-2016580667

PATIENT
  Age: 67 Year
  Sex: Female
  Weight: 68.93 kg

DRUGS (9)
  1. COQ10 [UBIDECARENONE] [Concomitant]
  2. XELJANZ [Suspect]
     Active Substance: TOFACITINIB CITRATE
     Dosage: 5 MG, 2X/DAY
     Route: 048
     Dates: start: 201511, end: 20180612
  3. PREDNISONE. [Concomitant]
     Active Substance: PREDNISONE
     Dosage: 2.5 MG, UNK
  4. CELEBREX [Concomitant]
     Active Substance: CELECOXIB
     Dosage: 100 MG, 2X/DAY
  5. XELJANZ [Suspect]
     Active Substance: TOFACITINIB CITRATE
     Indication: RHEUMATOID ARTHRITIS
     Dosage: 5 MG, 2X/DAY
     Route: 048
     Dates: start: 201508
  6. GINSENG [PANAX GINSENG] [Concomitant]
     Dosage: UNK
  7. NAPROSYN [NAPROXEN SODIUM] [Concomitant]
     Dosage: UNK
  8. VITAMIN E [TOCOPHEROL] [Concomitant]
     Dosage: UNK
  9. GINKOBA [Concomitant]
     Active Substance: GINKGO
     Dosage: UNK

REACTIONS (9)
  - Immune thrombocytopenic purpura [Not Recovered/Not Resolved]
  - Drug effect incomplete [Unknown]
  - Urinary tract infection [Unknown]
  - Fatigue [Unknown]
  - Compression fracture [Unknown]
  - Weight increased [Unknown]
  - Pollakiuria [Unknown]
  - Purpura [Not Recovered/Not Resolved]
  - Body height decreased [Unknown]

NARRATIVE: CASE EVENT DATE: 201606
